FAERS Safety Report 17504124 (Version 2)
Quarter: 2020Q2

REPORT INFORMATION
  Report Type: Report from Study
  Country: DE (occurrence: DE)
  Receive Date: 20200305
  Receipt Date: 20200415
  Transmission Date: 20200713
  Serious: Yes (Hospitalization)
  Sender: FDA-Public Use
  Company Number: NVSC2020DE060212

PATIENT
  Age: 44 Year
  Sex: Female
  Weight: 71 kg

DRUGS (22)
  1. XARELTO [Concomitant]
     Active Substance: RIVAROXABAN
     Indication: PRODUCT USED FOR UNKNOWN INDICATION
     Dosage: 2 OT, QD (UNIT DOSE: 15)
     Route: 065
     Dates: end: 20160205
  2. XARELTO [Concomitant]
     Active Substance: RIVAROXABAN
     Dosage: 1 OT, QD (UNIT DOSE: 20)
     Route: 065
  3. NOVALGIN [Concomitant]
     Indication: PAIN IN EXTREMITY
     Dosage: UNK
     Route: 065
     Dates: start: 20160621
  4. SATIVEX [Concomitant]
     Active Substance: NABIXIMOLS
     Indication: MULTIPLE SCLEROSIS
     Dosage: 1 OT, QD (0-0-2)
     Route: 048
     Dates: start: 20140512
  5. CALCIUM [Concomitant]
     Active Substance: CALCIUM
     Indication: PRODUCT USED FOR UNKNOWN INDICATION
     Dosage: 1 OT, QD
     Route: 065
  6. NEXIUM [Concomitant]
     Active Substance: ESOMEPRAZOLE MAGNESIUM
     Indication: PRODUCT USED FOR UNKNOWN INDICATION
     Dosage: 1 OT, QD (UNIT DOSE: 40)
     Route: 065
  7. BACLOFEN. [Concomitant]
     Active Substance: BACLOFEN
     Dosage: 25 OT, QD
     Route: 065
  8. XARELTO [Concomitant]
     Active Substance: RIVAROXABAN
     Dosage: UNIT DOSE: 20
     Route: 065
  9. MAXIM [Concomitant]
     Indication: PRODUCT USED FOR UNKNOWN INDICATION
     Dosage: 1 OT, QD
     Route: 065
  10. BACLOFEN. [Concomitant]
     Active Substance: BACLOFEN
     Indication: PRODUCT USED FOR UNKNOWN INDICATION
     Dosage: UNIT DOSE: 25
     Route: 065
  11. CALCIUM [Concomitant]
     Active Substance: CALCIUM
     Route: 065
  12. RAMIPRIL. [Concomitant]
     Active Substance: RAMIPRIL
     Indication: HYPERTENSION
     Dosage: 1 OT, QD (UNIT DOSE: 8)
     Route: 048
     Dates: start: 20140210
  13. AMLODIPINE [Concomitant]
     Active Substance: AMLODIPINE BESYLATE
     Indication: PRODUCT USED FOR UNKNOWN INDICATION
     Dosage: 1 OT, QD (UNIT DOSE: 10)
     Route: 065
  14. XARELTO [Concomitant]
     Active Substance: RIVAROXABAN
     Indication: PRODUCT USED FOR UNKNOWN INDICATION
     Dosage: UNIT DOSE: 15
     Route: 065
     Dates: end: 20160205
  15. LEVOFLOXACIN. [Suspect]
     Active Substance: LEVOFLOXACIN
     Indication: PLEURISY
     Dosage: UNK
     Route: 065
     Dates: start: 20160111, end: 20160116
  16. BACLOFEN. [Concomitant]
     Active Substance: BACLOFEN
     Indication: MULTIPLE SCLEROSIS
     Dosage: 0.5-0.5-1 TABLET DAILY
     Route: 048
     Dates: start: 20140512
  17. SATIVEX [Concomitant]
     Active Substance: NABIXIMOLS
     Dosage: 0-0-2
     Route: 048
     Dates: start: 20140512
  18. NEXIUM [Concomitant]
     Active Substance: ESOMEPRAZOLE MAGNESIUM
     Dosage: UNIT DOSE: 40
     Route: 065
  19. MAXIM [Concomitant]
     Route: 065
  20. RAMIPRIL. [Concomitant]
     Active Substance: RAMIPRIL
     Dosage: UNIT DOSE: 8
     Route: 048
     Dates: start: 20140210
  21. AMLODIPINE [Concomitant]
     Active Substance: AMLODIPINE BESYLATE
     Dosage: UNIT DOSE: 10
     Route: 065
  22. TYSABRI [Suspect]
     Active Substance: NATALIZUMAB
     Indication: MULTIPLE SCLEROSIS
     Dosage: 300 MG, Q4W
     Route: 042
     Dates: start: 20070705, end: 20160111

REACTIONS (12)
  - Back pain [Unknown]
  - Pulmonary embolism [Recovered/Resolved]
  - Pulmonary hypertension [Recovered/Resolved]
  - Hypocalcaemia [Unknown]
  - Respiratory failure [Recovered/Resolved]
  - Cor pulmonale acute [Recovered/Resolved]
  - Supraventricular extrasystoles [Recovered/Resolved]
  - Pleurisy [Recovered/Resolved]
  - Hypokalaemia [Unknown]
  - Dyspnoea [Unknown]
  - Drug hypersensitivity [Recovered/Resolved]
  - General physical health deterioration [Unknown]

NARRATIVE: CASE EVENT DATE: 20160104
